FAERS Safety Report 24687498 (Version 1)
Quarter: 2024Q4

REPORT INFORMATION
  Report Type: Spontaneous
  Country: US (occurrence: None)
  Receive Date: 20241202
  Receipt Date: 20241202
  Transmission Date: 20250114
  Serious: No
  Sender: Public
  Company Number: None

PATIENT
  Sex: Male

DRUGS (1)
  1. DORZOLAMIDE AND TIMOLOL [Suspect]
     Active Substance: DORZOLAMIDE HYDROCHLORIDE\TIMOLOL MALEATE
     Dosage: FREQUENCY : TWICE A DAY;?
     Route: 047
     Dates: start: 20241114

REACTIONS (3)
  - Ocular hyperaemia [None]
  - Lacrimation increased [None]
  - Product formulation issue [None]

NARRATIVE: CASE EVENT DATE: 20241120
